FAERS Safety Report 18374989 (Version 4)
Quarter: 2021Q4

REPORT INFORMATION
  Report Type: Spontaneous
  Country: JP (occurrence: JP)
  Receive Date: 20201013
  Receipt Date: 20211121
  Transmission Date: 20220303
  Serious: Yes (Hospitalization, Disabling, Other)
  Sender: FDA-Public Use
  Company Number: JP-ONO-2020JP024101

PATIENT
  Age: 57 Year
  Sex: Female
  Weight: 38 kg

DRUGS (21)
  1. KYPROLIS [Suspect]
     Active Substance: CARFILZOMIB
     Indication: Plasma cell myeloma
     Dosage: 25 MG
     Route: 041
     Dates: start: 20200508, end: 20200508
  2. KYPROLIS [Suspect]
     Active Substance: CARFILZOMIB
     Indication: Plasma cell myeloma
     Dosage: 88 MG
     Route: 041
     Dates: start: 20200515, end: 20200515
  3. KYPROLIS [Suspect]
     Active Substance: CARFILZOMIB
     Dosage: 25 UNK
     Route: 041
     Dates: start: 20200508, end: 20200508
  4. KYPROLIS [Suspect]
     Active Substance: CARFILZOMIB
     Dosage: 88 UNK
     Route: 041
     Dates: start: 20200515, end: 20200515
  5. LEVOFLOXACIN HEMIHYDRATE [Suspect]
     Active Substance: LEVOFLOXACIN
     Indication: Interstitial lung disease
     Dosage: UNK
     Route: 048
     Dates: start: 20200516
  6. LEVOFLOXACIN HEMIHYDRATE [Suspect]
     Active Substance: LEVOFLOXACIN
     Indication: Interstitial lung disease
     Dosage: UNK
     Route: 042
  7. LEVOFLOXACIN HEMIHYDRATE [Suspect]
     Active Substance: LEVOFLOXACIN
     Indication: Interstitial lung disease
     Dosage: UNK
     Route: 042
  8. METRONIDAZOLE [Suspect]
     Active Substance: METRONIDAZOLE
     Indication: Interstitial lung disease
     Dosage: UNK
     Route: 065
     Dates: start: 20200518
  9. METRONIDAZOLE [Suspect]
     Active Substance: METRONIDAZOLE
     Indication: Interstitial lung disease
  10. PASETOCIN [AMOXICILLIN TRIHYDRATE] [Concomitant]
     Dosage: UNK
     Route: 048
  11. PASETOCIN [AMOXICILLIN TRIHYDRATE] [Concomitant]
     Dosage: UNK
     Route: 048
  12. LANSOPRAZOLE [Concomitant]
     Active Substance: LANSOPRAZOLE
     Dosage: UNK
     Route: 065
  13. LANSOPRAZOLE [Concomitant]
     Active Substance: LANSOPRAZOLE
     Dosage: UNK
     Route: 065
  14. ACYCLOVIR [Concomitant]
     Active Substance: ACYCLOVIR
     Dosage: UNK
     Route: 065
  15. ACYCLOVIR [Concomitant]
     Active Substance: ACYCLOVIR
     Dosage: UNK
     Route: 065
  16. SULFAMETHOXAZOLE\TRIMETHOPRIM [Concomitant]
     Active Substance: SULFAMETHOXAZOLE\TRIMETHOPRIM
     Dosage: UNK
     Route: 065
  17. SULFAMETHOXAZOLE\TRIMETHOPRIM [Concomitant]
     Active Substance: SULFAMETHOXAZOLE\TRIMETHOPRIM
     Dosage: UNK
     Route: 065
  18. MAGNESIUM OXIDE [Concomitant]
     Active Substance: MAGNESIUM OXIDE
     Dosage: UNK
     Route: 065
  19. MAGNESIUM OXIDE [Concomitant]
     Active Substance: MAGNESIUM OXIDE
     Dosage: UNK
     Route: 065
  20. LENADEX [Concomitant]
     Active Substance: DEXAMETHASONE ACETATE
     Indication: Plasma cell myeloma
     Dosage: UNK
     Route: 065
     Dates: start: 20200508
  21. LENADEX [Concomitant]
     Active Substance: DEXAMETHASONE ACETATE
     Indication: Plasma cell myeloma

REACTIONS (8)
  - Chronic kidney disease [Not Recovered/Not Resolved]
  - Interstitial lung disease [Recovered/Resolved]
  - Acute kidney injury [Recovered/Resolved with Sequelae]
  - Pancytopenia [Recovered/Resolved]
  - Liver disorder [Recovered/Resolved]
  - Rash [Recovered/Resolved]
  - Rash pruritic [Recovered/Resolved]
  - Drug eruption [Unknown]

NARRATIVE: CASE EVENT DATE: 20200516
